FAERS Safety Report 4389671-6 (Version None)
Quarter: 2004Q2

REPORT INFORMATION
  Report Type: 
  Country: None (occurrence: None)
  Receive Date: 20040629
  Receipt Date: 20040319
  Transmission Date: 20050107
  Serious: Yes (Other)
  Sender: FDA-Public Use
  Company Number: US-JNJFOC-20031101174

PATIENT
  Age: 32 Year
  Sex: Male

DRUGS (12)
  1. DURAGESIC [Suspect]
     Indication: PAIN
     Dosage: 25 UG/HR, 1 IN 72 HOUR, TRANSDERMAL
     Route: 062
     Dates: start: 20030901, end: 20031201
  2. NEURONTIN [Concomitant]
  3. VISTARIL [Concomitant]
  4. PROZAC [Concomitant]
  5. LIPITOR [Concomitant]
  6. ELAVIL [Concomitant]
  7. SEROQUEL [Concomitant]
  8. ARTANE [Concomitant]
  9. BACLOFEN [Concomitant]
  10. PROTONIX [Concomitant]
  11. MOTRIN [Concomitant]
  12. EFFEXOR [Concomitant]

REACTIONS (2)
  - COMA [None]
  - DRUG ABUSER [None]
